FAERS Safety Report 5424630-3 (Version None)
Quarter: 2007Q3

REPORT INFORMATION
  Report Type: 
  Country: None (occurrence: None)
  Receive Date: 20070731
  Receipt Date: 20070523
  Transmission Date: 20080115
  Serious: No
  Sender: FDA-Public Use
  Company Number: US200705007155

PATIENT
  Age: 64 Year
  Sex: Female

DRUGS (5)
  1. BYETTA [Suspect]
     Indication: TYPE 2 DIABETES MELLITUS
     Dosage: 5 UG, SUBCUTANEOUS
     Route: 058
     Dates: start: 20070413, end: 20070501
  2. EXENATIDE (EXENATIDE) [Concomitant]
  3. METFORMIN HCL [Concomitant]
  4. AVAPRO [Concomitant]
  5. SYNTHROID [Concomitant]

REACTIONS (1)
  - MUSCLE SPASMS [None]
